FAERS Safety Report 10989331 (Version 2)
Quarter: 2021Q3

REPORT INFORMATION
  Report Type: Spontaneous
  Country: US (occurrence: US)
  Receive Date: 20150406
  Receipt Date: 20210811
  Transmission Date: 20211014
  Serious: Yes (Death, Hospitalization, Other)
  Sender: FDA-Public Use
  Company Number: US-AUROBINDO-AUR-APL-2015-02884

PATIENT
  Age: 15 Year
  Sex: Female

DRUGS (9)
  1. LORAZEPAM. [Suspect]
     Active Substance: LORAZEPAM
     Indication: PAIN
     Dosage: UNK
     Route: 065
  2. DIAZEPAM. [Suspect]
     Active Substance: DIAZEPAM
     Indication: PAIN
     Dosage: UNK
     Route: 065
  3. LIDOCAINE. [Suspect]
     Active Substance: LIDOCAINE
     Indication: PAIN
     Dosage: UNK
     Route: 061
  4. HYDROMORPHONE [Suspect]
     Active Substance: HYDROMORPHONE
     Indication: PAIN
     Dosage: UNK
     Route: 048
  5. GABAPENTIN. [Suspect]
     Active Substance: GABAPENTIN
     Indication: PAIN
     Dosage: UNK
     Route: 065
  6. OXYCODONE [Suspect]
     Active Substance: OXYCODONE
     Indication: PAIN
     Dosage: UNK
     Route: 065
  7. METHADONE [Suspect]
     Active Substance: METHADONE HYDROCHLORIDE
     Indication: PAIN
     Dosage: UNK
     Route: 065
  8. FENTANYL. [Suspect]
     Active Substance: FENTANYL
     Indication: PAIN
     Dosage: UNK
     Route: 002
  9. ACETAMINOPHEN. [Suspect]
     Active Substance: ACETAMINOPHEN
     Indication: PAIN
     Dosage: UNK
     Route: 065

REACTIONS (13)
  - Disease progression [Not Recovered/Not Resolved]
  - Drug ineffective [Unknown]
  - Pain [Unknown]
  - Somnolence [Unknown]
  - Renal failure [Not Recovered/Not Resolved]
  - Nausea [Not Recovered/Not Resolved]
  - Vomiting [Not Recovered/Not Resolved]
  - Treatment failure [Unknown]
  - Death [Fatal]
  - Urinary retention [Not Recovered/Not Resolved]
  - Weight bearing difficulty [Unknown]
  - Pain in extremity [Unknown]
  - Toxicity to various agents [Unknown]
